FAERS Safety Report 8440160-9 (Version None)
Quarter: 2012Q2

REPORT INFORMATION
  Report Type: 
  Country: None (occurrence: None)
  Receive Date: 20120615
  Receipt Date: 20120613
  Transmission Date: 20120825
  Serious: Yes (Hospitalization)
  Sender: FDA-Public Use
  Company Number: NL-ROCHE-1050987

PATIENT
  Sex: Male
  Weight: 72 kg

DRUGS (12)
  1. VINCRISTINE [Suspect]
     Indication: MALIGNANT LYMPHOID NEOPLASM
     Dosage: LAST DOSE PRIOR TO SAE:08/MAR/2012
     Route: 042
     Dates: start: 20120308
  2. DOXORUBICIN HYDROCHLORIDE [Suspect]
     Dates: start: 20120329
  3. VINCRISTINE SULFATE [Suspect]
     Dates: start: 20120329
  4. PREDNISONE TAB [Suspect]
     Indication: MALIGNANT LYMPHOID NEOPLASM
     Route: 048
     Dates: start: 20120308
  5. DOXORUBICIN HYDROCHLORIDE [Suspect]
     Indication: MALIGNANT LYMPHOID NEOPLASM
     Dosage: LAST DOSE PRIOR TO SAE:08/MAR/2012
     Route: 042
     Dates: start: 20120308
  6. MABTHERA [Suspect]
     Indication: MALIGNANT LYMPHOID NEOPLASM
     Dosage: NEXT DOSE DELAYED, LAST DOSE PRIOR TO SAE:08/MAR/2012
     Route: 042
     Dates: start: 20120308
  7. MABTHERA [Suspect]
     Dates: start: 20120329
  8. FILGRASTIM [Suspect]
     Dates: start: 20120329
  9. CYCLOPHOSPHAMIDE [Suspect]
     Dates: start: 20120329
  10. CYCLOPHOSPHAMIDE [Suspect]
     Indication: MALIGNANT LYMPHOID NEOPLASM
     Dosage: LAST DOSE PRIOR TO SAE:08/MAR/2012
     Route: 042
     Dates: start: 20120308
  11. FILGRASTIM [Suspect]
     Indication: MALIGNANT LYMPHOID NEOPLASM
     Dosage: LAST DOSE PRIOR TO SAE:09/MAR/2012
     Route: 058
     Dates: start: 20120309
  12. PREDNISONE [Suspect]
     Dates: start: 20120329

REACTIONS (1)
  - ILEUS [None]
